FAERS Safety Report 7519283-4 (Version None)
Quarter: 2011Q2

REPORT INFORMATION
  Report Type: 
  Country: None (occurrence: None)
  Receive Date: 20110602
  Receipt Date: 20110523
  Transmission Date: 20111010
  Serious: Yes (Hospitalization, Other)
  Sender: FDA-Public Use
  Company Number: PHHY2011US46103

PATIENT
  Sex: Female

DRUGS (1)
  1. NEORAL [Suspect]
     Indication: LUNG TRANSPLANT
     Dosage: 75 MG, Q12H
     Route: 048
     Dates: start: 20101227

REACTIONS (1)
  - DEHYDRATION [None]
